FAERS Safety Report 16566034 (Version 1)
Quarter: 2019Q3

REPORT INFORMATION
  Report Type: Spontaneous
  Country: FI (occurrence: FI)
  Receive Date: 20190712
  Receipt Date: 20190712
  Transmission Date: 20191004
  Serious: Yes (Other)
  Sender: FDA-Public Use
  Company Number: FI-PFIZER INC-2019293470

PATIENT
  Sex: Female

DRUGS (3)
  1. SULFASALAZINE. [Suspect]
     Active Substance: SULFASALAZINE
     Dosage: UNK
     Dates: end: 2018
  2. LEFLUNOMIDE. [Interacting]
     Active Substance: LEFLUNOMIDE
     Dosage: UNK
     Dates: end: 2018
  3. ROACTEMRA [Interacting]
     Active Substance: TOCILIZUMAB
     Indication: POLYARTHRITIS
     Dosage: 300 MG, EVERY 3 WEEKS
     Route: 042
     Dates: start: 2016

REACTIONS (2)
  - Drug interaction [Unknown]
  - Neutrophil count decreased [Recovered/Resolved]
